FAERS Safety Report 5830802-6 (Version None)
Quarter: 2008Q3

REPORT INFORMATION
  Report Type: 
  Country: None (occurrence: None)
  Receive Date: 20080801
  Receipt Date: 20071203
  Transmission Date: 20090109
  Serious: No
  Sender: FDA-Public Use
  Company Number: US-BRISTOL-MYERS SQUIBB COMPANY-14001291

PATIENT
  Age: 89 Year
  Sex: Female
  Weight: 52 kg

DRUGS (3)
  1. COUMADIN [Suspect]
  2. PRAVACHOL [Concomitant]
  3. SYNTHROID [Concomitant]

REACTIONS (1)
  - RASH MACULAR [None]
